FAERS Safety Report 10168147 (Version 1)
Quarter: 2014Q2

REPORT INFORMATION
  Report Type: Spontaneous
  Country: JP (occurrence: JP)
  Receive Date: 20140512
  Receipt Date: 20140512
  Transmission Date: 20141212
  Serious: Yes (Other)
  Sender: FDA-Public Use
  Company Number: JP-ACTAVIS-2014-09415

PATIENT
  Age: 83 Year
  Sex: Male
  Weight: 70 kg

DRUGS (1)
  1. OXYCODONE (UNKNOWN) [Suspect]
     Indication: CANCER PAIN
     Dosage: 20 MG, DAILY
     Route: 048

REACTIONS (1)
  - Delirium [Recovered/Resolved]
